FAERS Safety Report 4730078-7 (Version None)
Quarter: 2005Q3

REPORT INFORMATION
  Report Type: 
  Country: None (occurrence: None)
  Receive Date: 20050801
  Receipt Date: 20050725
  Transmission Date: 20060218
  Serious: Yes (Other)
  Sender: FDA-Public Use
  Company Number: PHFR2005GB02565

PATIENT
  Age: 39 Year
  Sex: 0

DRUGS (1)
  1. LAMISIL [Suspect]
     Indication: NAIL TINEA
     Dosage: 250 MG/DAY
     Route: 048
     Dates: start: 20050523, end: 20050701

REACTIONS (3)
  - CRYING [None]
  - DEPRESSION [None]
  - MOOD ALTERED [None]
